FAERS Safety Report 4527788-3 (Version None)
Quarter: 2004Q4

REPORT INFORMATION
  Report Type: 
  Country: None (occurrence: None)
  Receive Date: 20041123
  Receipt Date: 20031120
  Transmission Date: 20050328
  Serious: Yes (Life-Threatening)
  Sender: FDA-Public Use
  Company Number: ATO-03-0725(0)

PATIENT
  Age: 76 Year
  Sex: Female
  Weight: 70.7611 kg

DRUGS (2)
  1. TRISENOX [Suspect]
     Indication: MYELODYSPLASTIC SYNDROME
     Dosage: (0.25 MG/KG,QD),IVI; (0.25 MG/KG,BIW),IVI
     Route: 042
     Dates: start: 20030929, end: 20031003
  2. TRISENOX [Suspect]
     Indication: MYELODYSPLASTIC SYNDROME
     Dosage: (0.25 MG/KG,QD),IVI; (0.25 MG/KG,BIW),IVI
     Route: 042
     Dates: start: 20031006

REACTIONS (1)
  - ATRIOVENTRICULAR BLOCK SECOND DEGREE [None]
